FAERS Safety Report 10563007 (Version 1)
Quarter: 2014Q4

REPORT INFORMATION
  Report Type: Spontaneous
  Country: US (occurrence: None)
  Receive Date: 20141103
  Receipt Date: 20141103
  Transmission Date: 20150529
  Serious: Yes (Hospitalization)
  Sender: FDA-Public Use
  Company Number: None

PATIENT
  Age: 31 Year
  Sex: Female
  Weight: 84.37 kg

DRUGS (1)
  1. CLINDAMYCIN [Suspect]
     Active Substance: CLINDAMYCIN\CLINDAMYCIN PHOSPHATE
     Indication: INFECTED BITES
     Dosage: 28 PILLS FOURT IMES DAILY TAKEN BY MOUTH
     Route: 048
     Dates: start: 20141022, end: 20141028

REACTIONS (10)
  - Dysstasia [None]
  - Feeling abnormal [None]
  - Dyspnoea [None]
  - Gait disturbance [None]
  - Paraesthesia [None]
  - Chills [None]
  - Chest discomfort [None]
  - Muscle spasms [None]
  - Asthenia [None]
  - Dizziness [None]

NARRATIVE: CASE EVENT DATE: 20141023
